FAERS Safety Report 10574011 (Version 4)
Quarter: 2015Q1

REPORT INFORMATION
  Report Type: Report from Study
  Country: JP (occurrence: JP)
  Receive Date: 20141110
  Receipt Date: 20150129
  Transmission Date: 20150720
  Serious: Yes (Life-Threatening, Other)
  Sender: FDA-Public Use
  Company Number: JP-GLAXOSMITHKLINE-JP2014JPN016179

PATIENT
  Age: 55 Year
  Sex: Male
  Weight: 76 kg

DRUGS (81)
  1. RITUXAN [Suspect]
     Active Substance: RITUXIMAB
     Dosage: 700 MG, QD
     Route: 042
     Dates: start: 20121211, end: 20121211
  2. FUROSEMIDE. [Concomitant]
     Active Substance: FUROSEMIDE
     Indication: ADVERSE EVENT
     Dosage: 60 MG, QD
     Dates: start: 20130304, end: 20130304
  3. TAMIFLU [Concomitant]
     Active Substance: OSELTAMIVIR PHOSPHATE
     Indication: ANTIVIRAL PROPHYLAXIS
     Dosage: 75 MG, QD
     Route: 048
     Dates: start: 20130205, end: 20130214
  4. GRAN [Concomitant]
     Active Substance: FILGRASTIM
     Dosage: 75 ?G, QD
     Dates: start: 20121219, end: 20121223
  5. FUROSEMIDE. [Concomitant]
     Active Substance: FUROSEMIDE
     Dosage: 40 MG, QD
     Dates: start: 20121128
  6. POLARAMINE [Concomitant]
     Active Substance: DEXCHLORPHENIRAMINE MALEATE
     Indication: PROPHYLAXIS
     Dosage: 4 MG, QD
     Dates: start: 20121026, end: 20121026
  7. ATOVAQUONE. [Suspect]
     Active Substance: ATOVAQUONE
     Indication: ANTIFUNGAL PROPHYLAXIS
     Dosage: 1500 MG, QD
     Dates: start: 20121026, end: 20130309
  8. ENDOXAN [Suspect]
     Active Substance: CYCLOPHOSPHAMIDE
     Indication: DIFFUSE LARGE B-CELL LYMPHOMA
     Dosage: 1400 MG, QD
     Route: 042
     Dates: start: 20121027, end: 20121027
  9. ENDOXAN [Suspect]
     Active Substance: CYCLOPHOSPHAMIDE
     Dosage: 1400 MG, QD
     Route: 042
     Dates: start: 20121212, end: 20121212
  10. PREDONINE [Suspect]
     Active Substance: PREDNISOLONE\PREDNISOLONE ACETATE\PREDNISOLONE SODIUM SUCCINATE
     Dosage: 100 MG, QD
     Route: 042
     Dates: start: 20121110, end: 20121110
  11. PREDONINE [Suspect]
     Active Substance: PREDNISOLONE\PREDNISOLONE ACETATE\PREDNISOLONE SODIUM SUCCINATE
     Dosage: 100 MG, QD
     Route: 042
     Dates: start: 20121227, end: 20121227
  12. PREDONINE [Suspect]
     Active Substance: PREDNISOLONE\PREDNISOLONE ACETATE\PREDNISOLONE SODIUM SUCCINATE
     Dosage: 100 MG, QD
     Route: 048
     Dates: start: 20121111, end: 20121114
  13. PREDONINE [Suspect]
     Active Substance: PREDNISOLONE\PREDNISOLONE ACETATE\PREDNISOLONE SODIUM SUCCINATE
     Dosage: 100 MG, QD
     Route: 048
     Dates: start: 20121213, end: 20121216
  14. RESCALMIN [Concomitant]
     Indication: ALLERGY PROPHYLAXIS
     Dosage: 5 ML, QD
     Dates: start: 20130304, end: 20130304
  15. FUROSEMIDE. [Concomitant]
     Active Substance: FUROSEMIDE
     Dosage: 20 MG, QD
     Dates: start: 20130306, end: 20130307
  16. ACICLOVIR [Concomitant]
     Active Substance: ACYCLOVIR
     Indication: INFECTION PROPHYLAXIS
     Dosage: 200 MG, QID
     Route: 048
     Dates: start: 20130121, end: 20130124
  17. DIAMOX SEQUELS [Concomitant]
     Active Substance: ACETAZOLAMIDE
     Indication: PROPHYLAXIS
     Dosage: 500 MG, QD
     Dates: start: 20130227, end: 20130227
  18. LANTUS [Concomitant]
     Active Substance: INSULIN GLARGINE
     Dosage: 9 IU, QD
  19. MAGMITT [Concomitant]
     Active Substance: MAGNESIUM OXIDE
     Dosage: 500 MG, QID
     Route: 048
     Dates: start: 20121012, end: 20121224
  20. POLARAMINE [Concomitant]
     Active Substance: DEXCHLORPHENIRAMINE MALEATE
     Dosage: 4 MG, QD
     Dates: start: 20121126, end: 20121126
  21. SEROTONE [Concomitant]
     Active Substance: AZASETRON HYDROCHLORIDE
     Indication: PROPHYLAXIS OF NAUSEA AND VOMITING
     Dosage: 10 MG, QD
     Dates: start: 20121027, end: 20121027
  22. RITUXAN [Suspect]
     Active Substance: RITUXIMAB
     Dosage: 700 MG, QD
     Route: 042
     Dates: start: 20121109, end: 20121109
  23. DOXORUBICIN [Suspect]
     Active Substance: DOXORUBICIN
     Dosage: 90 MG, QD
     Route: 042
     Dates: start: 20121127, end: 20121127
  24. DEXART [Suspect]
     Active Substance: DEXAMETHASONE SODIUM PHOSPHATE
     Indication: DIFFUSE LARGE B-CELL LYMPHOMA
     Dosage: 40 MG, QD
     Route: 042
     Dates: start: 20130227, end: 20130302
  25. EMEND [Concomitant]
     Active Substance: APREPITANT
     Dosage: 80 MG, QD
     Dates: start: 20130228, end: 20130302
  26. ALOXI [Concomitant]
     Active Substance: PALONOSETRON HYDROCHLORIDE
     Dosage: 0.75 MG, QD
     Dates: start: 20130301, end: 20130301
  27. ACTOS [Concomitant]
     Active Substance: PIOGLITAZONE HYDROCHLORIDE
     Dosage: 15 MG, QD
     Route: 048
  28. FUROSEMIDE. [Concomitant]
     Active Substance: FUROSEMIDE
     Indication: PROPHYLAXIS
     Dosage: 40 MG, QD
     Dates: start: 20121026, end: 20121108
  29. FUROSEMIDE. [Concomitant]
     Active Substance: FUROSEMIDE
     Dosage: 20 MG, QD
     Dates: start: 20121109, end: 20121127
  30. BRUFEN [Concomitant]
     Active Substance: IBUPROFEN
     Dosage: 200 MG, QD
     Dates: start: 20121211, end: 20121211
  31. DOXORUBICIN [Suspect]
     Active Substance: DOXORUBICIN
     Dosage: 90 MG, QD
     Route: 042
     Dates: start: 20121110, end: 20121110
  32. PREDONINE [Suspect]
     Active Substance: PREDNISOLONE\PREDNISOLONE ACETATE\PREDNISOLONE SODIUM SUCCINATE
     Dosage: 100 MG, QD
     Route: 042
     Dates: start: 20121212, end: 20121212
  33. PREDONINE [Suspect]
     Active Substance: PREDNISOLONE\PREDNISOLONE ACETATE\PREDNISOLONE SODIUM SUCCINATE
     Dosage: 100 MG, QD
     Route: 048
     Dates: start: 20121128, end: 20121201
  34. LASTET [Suspect]
     Active Substance: ETOPOSIDE
     Indication: DIFFUSE LARGE B-CELL LYMPHOMA
     Dosage: 960 MG, QD
     Route: 042
     Dates: start: 20130227, end: 20130301
  35. FLUCONAZOLE. [Concomitant]
     Active Substance: FLUCONAZOLE
     Dosage: 200 MG, QD
     Dates: start: 20130305, end: 20130309
  36. ACICLOVIR [Concomitant]
     Active Substance: ACYCLOVIR
     Dosage: 200 MG, BID
     Route: 048
     Dates: start: 20130305, end: 20130309
  37. GRAN [Concomitant]
     Active Substance: FILGRASTIM
     Indication: PROPHYLAXIS
     Dosage: 75 ?G, QD
     Dates: start: 20121103, end: 20121108
  38. GRAN [Concomitant]
     Active Substance: FILGRASTIM
     Dosage: 150 ?G, QD
     Dates: start: 20130309, end: 20130312
  39. ALOXI [Concomitant]
     Active Substance: PALONOSETRON HYDROCHLORIDE
     Indication: PROPHYLAXIS OF NAUSEA AND VOMITING
     Dosage: 0.75 MG, QD
     Dates: start: 20130227, end: 20130227
  40. JANUVIA [Concomitant]
     Active Substance: SITAGLIPTIN PHOSPHATE
     Dosage: 50 MG, QD
     Route: 048
  41. BRUFEN [Concomitant]
     Active Substance: IBUPROFEN
     Indication: PROPHYLAXIS
     Dosage: 200 MG, QD
     Dates: start: 20121026, end: 20121026
  42. POLARAMINE [Concomitant]
     Active Substance: DEXCHLORPHENIRAMINE MALEATE
     Dosage: 4 MG, QD
     Dates: start: 20121109, end: 20121109
  43. POLARAMINE [Concomitant]
     Active Substance: DEXCHLORPHENIRAMINE MALEATE
     Dosage: 4 MG, QD
     Dates: start: 20121226, end: 20121226
  44. SEROTONE [Concomitant]
     Active Substance: AZASETRON HYDROCHLORIDE
     Dosage: 10 MG, QD
     Dates: start: 20121212, end: 20121212
  45. ENDOXAN [Suspect]
     Active Substance: CYCLOPHOSPHAMIDE
     Dosage: 1400 MG, QD
     Route: 042
     Dates: start: 20121227, end: 20121227
  46. DOXORUBICIN [Suspect]
     Active Substance: DOXORUBICIN
     Indication: DIFFUSE LARGE B-CELL LYMPHOMA
     Dosage: 90 MG, QD
     Route: 042
     Dates: start: 20121027, end: 20121027
  47. FLUCONAZOLE. [Concomitant]
     Active Substance: FLUCONAZOLE
     Indication: INFECTION PROPHYLAXIS
     Dosage: 200 MG, QD
     Dates: start: 20130308, end: 20130310
  48. GRAN [Concomitant]
     Active Substance: FILGRASTIM
     Dosage: 75 ?G, QD
     Dates: start: 20130307, end: 20130308
  49. ALKERAN [Suspect]
     Active Substance: MELPHALAN
     Indication: DIFFUSE LARGE B-CELL LYMPHOMA
     Dosage: 250 MG, QD
     Route: 042
     Dates: start: 20130302, end: 20130302
  50. ENDOXAN [Suspect]
     Active Substance: CYCLOPHOSPHAMIDE
     Dosage: 1400 MG, QD
     Route: 042
     Dates: start: 20121127, end: 20121127
  51. PREDONINE [Suspect]
     Active Substance: PREDNISOLONE\PREDNISOLONE ACETATE\PREDNISOLONE SODIUM SUCCINATE
     Dosage: 100 MG, QD
     Route: 042
     Dates: start: 20121127, end: 20121127
  52. HYDROCORTONE [Concomitant]
     Active Substance: HYDROCORTISONE
     Dosage: 100 MG, QD
     Dates: start: 20130304, end: 20130304
  53. GRAN [Concomitant]
     Active Substance: FILGRASTIM
     Dosage: 75 ?G, QD
     Dates: start: 20121204, end: 20121209
  54. EMEND [Concomitant]
     Active Substance: APREPITANT
     Indication: PROPHYLAXIS OF NAUSEA AND VOMITING
     Dosage: 125 MG, QD
     Route: 048
     Dates: start: 20130227, end: 20130227
  55. SEROTONE [Concomitant]
     Active Substance: AZASETRON HYDROCHLORIDE
     Dosage: 10 MG, QD
     Dates: start: 20121127, end: 20121127
  56. SEROTONE [Concomitant]
     Active Substance: AZASETRON HYDROCHLORIDE
     Dosage: 10 MG, QD
     Dates: start: 20121227, end: 20121227
  57. RITUXAN [Suspect]
     Active Substance: RITUXIMAB
     Indication: DIFFUSE LARGE B-CELL LYMPHOMA
     Dosage: 700 MG, QD
     Route: 042
     Dates: start: 20121026, end: 20121026
  58. ENDOXAN [Suspect]
     Active Substance: CYCLOPHOSPHAMIDE
     Dosage: 1400 MG, QD
     Route: 042
     Dates: start: 20121110, end: 20121110
  59. DOXORUBICIN [Suspect]
     Active Substance: DOXORUBICIN
     Dosage: 90 MG, QD
     Route: 042
     Dates: start: 20121212, end: 20121212
  60. ONCOVIN [Suspect]
     Active Substance: VINCRISTINE SULFATE
     Dosage: 2 MG, QD
     Route: 042
     Dates: start: 20121212, end: 20121212
  61. PREDONINE [Suspect]
     Active Substance: PREDNISOLONE\PREDNISOLONE ACETATE\PREDNISOLONE SODIUM SUCCINATE
     Indication: DIFFUSE LARGE B-CELL LYMPHOMA
     Dosage: 100 MG, QD
     Route: 042
     Dates: start: 20121027, end: 20121027
  62. PREDONINE [Suspect]
     Active Substance: PREDNISOLONE\PREDNISOLONE ACETATE\PREDNISOLONE SODIUM SUCCINATE
     Indication: DIFFUSE LARGE B-CELL LYMPHOMA
     Dosage: 100 MG, QD
     Route: 048
     Dates: start: 20121028, end: 20121031
  63. BRUFEN [Concomitant]
     Active Substance: IBUPROFEN
     Dosage: 200 MG, QD
     Dates: start: 20121109, end: 20121109
  64. BRUFEN [Concomitant]
     Active Substance: IBUPROFEN
     Dosage: 200 MG, QD
     Dates: start: 20121126, end: 20121126
  65. BRUFEN [Concomitant]
     Active Substance: IBUPROFEN
     Dosage: 200 MG, QD
     Dates: start: 20121226, end: 20121226
  66. POLARAMINE [Concomitant]
     Active Substance: DEXCHLORPHENIRAMINE MALEATE
     Dosage: 4 MG, QD
     Dates: start: 20121211, end: 20121211
  67. SEROTONE [Concomitant]
     Active Substance: AZASETRON HYDROCHLORIDE
     Dosage: 10 MG, QD
     Dates: start: 20121110, end: 20121110
  68. RITUXAN [Suspect]
     Active Substance: RITUXIMAB
     Dosage: 700 MG, QD
     Route: 042
     Dates: start: 20121126, end: 20121126
  69. RITUXAN [Suspect]
     Active Substance: RITUXIMAB
     Dosage: 700 MG, QD
     Route: 042
     Dates: start: 20121226, end: 20121226
  70. ENDOXAN [Suspect]
     Active Substance: CYCLOPHOSPHAMIDE
     Dosage: 4900 MG, QD
     Route: 042
     Dates: start: 20130227, end: 20130228
  71. DOXORUBICIN [Suspect]
     Active Substance: DOXORUBICIN
     Dosage: 90 MG, QD
     Route: 042
     Dates: start: 20121227, end: 20121227
  72. ONCOVIN [Suspect]
     Active Substance: VINCRISTINE SULFATE
     Indication: DIFFUSE LARGE B-CELL LYMPHOMA
     Dosage: 2 MG, QD
     Route: 042
     Dates: start: 20121027, end: 20121027
  73. ONCOVIN [Suspect]
     Active Substance: VINCRISTINE SULFATE
     Dosage: 2 MG, QD
     Route: 042
     Dates: start: 20121110, end: 20121110
  74. ONCOVIN [Suspect]
     Active Substance: VINCRISTINE SULFATE
     Dosage: 2 MG, QD
     Route: 042
     Dates: start: 20121127, end: 20121127
  75. ONCOVIN [Suspect]
     Active Substance: VINCRISTINE SULFATE
     Dosage: 2 MG, QD
     Route: 042
     Dates: start: 20121227, end: 20121227
  76. PREDONINE [Suspect]
     Active Substance: PREDNISOLONE\PREDNISOLONE ACETATE\PREDNISOLONE SODIUM SUCCINATE
     Dosage: 100 MG, QD
     Route: 048
     Dates: start: 20121228, end: 20121231
  77. FUROSEMIDE. [Concomitant]
     Active Substance: FUROSEMIDE
     Indication: PROPHYLAXIS
     Dosage: 20 MG, QD
     Dates: start: 20130228, end: 20130303
  78. FLUCONAZOLE. [Concomitant]
     Active Substance: FLUCONAZOLE
     Indication: INFECTION PROPHYLAXIS
     Dosage: 200 MG, QD
     Route: 048
     Dates: start: 20130121, end: 20130124
  79. GRAN [Concomitant]
     Active Substance: FILGRASTIM
     Dosage: 600 ?G, QD
     Dates: start: 20121117, end: 20121121
  80. UROMITEXAN [Concomitant]
     Active Substance: MESNA
     Indication: PROPHYLAXIS
     Dosage: 2000 MG, TID
     Dates: start: 20130227, end: 20130228
  81. NOVORAPID [Concomitant]
     Active Substance: INSULIN ASPART
     Dosage: 30 IU, TID

REACTIONS (9)
  - Thrombotic microangiopathy [Recovering/Resolving]
  - Hypokalaemia [Recovered/Resolved]
  - Bursitis [Recovered/Resolved]
  - Ventricular extrasystoles [Recovered/Resolved]
  - Atrial fibrillation [Recovering/Resolving]
  - Hyperuricaemia [Recovered/Resolved]
  - Febrile neutropenia [Recovered/Resolved]
  - Diarrhoea [Recovering/Resolving]
  - Fibrin D dimer increased [Recovering/Resolving]

NARRATIVE: CASE EVENT DATE: 20121226
